FAERS Safety Report 18249556 (Version 1)
Quarter: 2020Q3

REPORT INFORMATION
  Report Type: Spontaneous
  Country: US (occurrence: US)
  Receive Date: 20200909
  Receipt Date: 20200909
  Transmission Date: 20201103
  Serious: No
  Sender: FDA-Public Use
  Company Number: US-ELI_LILLY_AND_COMPANY-US202009003795

PATIENT
  Sex: Female

DRUGS (1)
  1. EMGALITY [Suspect]
     Active Substance: GALCANEZUMAB-GNLM
     Indication: VESTIBULAR MIGRAINE
     Dosage: 120 MG, UNKNOWN
     Route: 058

REACTIONS (4)
  - Aphthous ulcer [Unknown]
  - Glossodynia [Not Recovered/Not Resolved]
  - Off label use [Unknown]
  - Swollen tongue [Recovered/Resolved]
